FAERS Safety Report 8862036 (Version 1)
Quarter: 2012Q4

REPORT INFORMATION
  Report Type: 
  Country: US (occurrence: US)
  Receive Date: 20121025
  Receipt Date: 20121025
  Transmission Date: 20130627
  Serious: No
  Sender: FDA-Public Use
  Company Number: US-TARO-2012P1034314

PATIENT
  Age: 69 Year
  Sex: Female
  Weight: 63.5 kg

DRUGS (2)
  1. CLOTRIMAZOLE [Suspect]
     Dates: start: 20120526, end: 20120526
  2. ATHLETE^S FOOT CREAM 1OZ [Suspect]
     Indication: RASH
     Dates: start: 20120512, end: 201205

REACTIONS (12)
  - Urticaria [Recovered/Resolved]
  - Throat tightness [Recovering/Resolving]
  - Sensation of foreign body [Recovered/Resolved]
  - Oropharyngeal pain [Recovered/Resolved]
  - Insomnia [Recovered/Resolved]
  - Cough [Recovered/Resolved]
  - Pruritus [Recovered/Resolved]
  - Hypersensitivity [Not Recovered/Not Resolved]
  - Nasopharyngitis [Recovered/Resolved]
  - Increased upper airway secretion [Recovered/Resolved]
  - Dysphonia [Recovered/Resolved]
  - Skin lesion [Recovered/Resolved]
